FAERS Safety Report 24726862 (Version 1)
Quarter: 2024Q4

REPORT INFORMATION
  Report Type: Spontaneous
  Country: PT (occurrence: PT)
  Receive Date: 20241212
  Receipt Date: 20241212
  Transmission Date: 20250114
  Serious: Yes (Hospitalization)
  Sender: PFIZER
  Company Number: None

PATIENT
  Age: 55 Year
  Sex: Male
  Weight: 107 kg

DRUGS (4)
  1. AZITHROMYCIN [Suspect]
     Active Substance: AZITHROMYCIN
     Indication: Laryngitis
     Dosage: 500 MG, 1X/DAY
     Route: 048
     Dates: start: 20240923, end: 20240925
  2. MILID [Concomitant]
     Dosage: UNK
     Route: 048
  3. IBUPROFEN [Concomitant]
     Active Substance: IBUPROFEN
     Dosage: UNK
     Route: 048
  4. AERINAZE [DESLORATADINE;PSEUDOEPHEDRINE SULFATE] [Concomitant]
     Dosage: UNK
     Route: 048

REACTIONS (2)
  - Rash macular [Recovering/Resolving]
  - Pain [Recovering/Resolving]

NARRATIVE: CASE EVENT DATE: 20240923
